FAERS Safety Report 5981197-9 (Version None)
Quarter: 2008Q4

REPORT INFORMATION
  Report Type: 
  Country: None (occurrence: None)
  Receive Date: 20081205
  Receipt Date: 20081127
  Transmission Date: 20090506
  Serious: Yes (Hospitalization)
  Sender: FDA-Public Use
  Company Number: B0548096A

PATIENT
  Age: 26 Year
  Sex: Female

DRUGS (2)
  1. KIVEXA [Suspect]
     Indication: HIV INFECTION
     Route: 048
     Dates: start: 20030214
  2. VIRAMUNE [Suspect]
     Indication: HIV INFECTION
     Dosage: 200MG PER DAY
     Route: 048
     Dates: start: 20080425, end: 20080530

REACTIONS (4)
  - HEPATOCELLULAR INJURY [None]
  - HYPERSENSITIVITY [None]
  - PYREXIA [None]
  - SKIN REACTION [None]
